FAERS Safety Report 13498566 (Version 1)
Quarter: 2017Q2

REPORT INFORMATION
  Report Type: Spontaneous
  Country: DE (occurrence: DE)
  Receive Date: 20170501
  Receipt Date: 20170501
  Transmission Date: 20170830
  Serious: Yes (Other)
  Sender: FDA-Public Use
  Company Number: PHHY2016DE183146

PATIENT
  Age: 58 Year
  Sex: Female

DRUGS (1)
  1. CLINDAMYCIN 1A PHARMA [Suspect]
     Active Substance: CLINDAMYCIN HYDROCHLORIDE
     Indication: STAPHYLOCOCCAL INFECTION
     Dosage: 600 MG, 4 DAYS
     Route: 048
     Dates: start: 20160610, end: 20160614

REACTIONS (2)
  - Laryngeal dyspnoea [Recovered/Resolved]
  - Tooth discolouration [Recovered/Resolved]

NARRATIVE: CASE EVENT DATE: 20160610
